FAERS Safety Report 5636963-6 (Version None)
Quarter: 2008Q1

REPORT INFORMATION
  Report Type: 
  Country: None (occurrence: None)
  Receive Date: 20080225
  Receipt Date: 20080213
  Transmission Date: 20080703
  Serious: Yes (Hospitalization)
  Sender: FDA-Public Use
  Company Number: DK-AVENTIS-200720405GDDC

PATIENT
  Age: 81 Year
  Sex: Male

DRUGS (10)
  1. MINIRIN MELT [Suspect]
     Indication: NOCTURIA
     Route: 060
     Dates: start: 20070917, end: 20071026
  2. SIMVASTATIN [Concomitant]
  3. FINASTERIDE [Concomitant]
  4. ASPIRIN [Concomitant]
  5. INSULIN GLARGINE [Concomitant]
     Dosage: DOSE: UNK
  6. INSULIN [Concomitant]
     Dosage: DOSE: UNK
  7. CARVEDILOL [Concomitant]
  8. AMLODIPINE [Concomitant]
  9. LISINOPRIL [Concomitant]
  10. PANTOPRAZOLE [Concomitant]

REACTIONS (1)
  - CARDIAC FAILURE CONGESTIVE [None]
